FAERS Safety Report 6423644-4 (Version None)
Quarter: 2009Q4

REPORT INFORMATION
  Report Type: 
  Country: None (occurrence: None)
  Receive Date: 20091028
  Receipt Date: 20091019
  Transmission Date: 20100525
  Serious: Yes (Other)
  Sender: FDA-Public Use
  Company Number: 2009EU003823

PATIENT
  Age: 21 Year
  Sex: Female
  Weight: 89 kg

DRUGS (3)
  1. PROGRAF [Suspect]
     Indication: TRANSPLANT
     Dosage: 40 MG, TOTAL DOSE, ORAL ; /D, ORAL
     Route: 048
     Dates: start: 20090924, end: 20090924
  2. PROGRAF [Suspect]
     Indication: TRANSPLANT
     Dosage: 40 MG, TOTAL DOSE, ORAL ; /D, ORAL
     Route: 048
     Dates: start: 20071201
  3. MYCOPHENOLATE MOFETIL [Concomitant]

REACTIONS (2)
  - BLOOD CREATINE INCREASED [None]
  - MULTIPLE DRUG OVERDOSE [None]
